FAERS Safety Report 7021620-4 (Version None)
Quarter: 2010Q3

REPORT INFORMATION
  Report Type: 
  Country: None (occurrence: None)
  Receive Date: 20100928
  Receipt Date: 20100922
  Transmission Date: 20110219
  Serious: Yes (Life-Threatening)
  Sender: FDA-Public Use
  Company Number: 2010SP050824

PATIENT
  Sex: Female

DRUGS (1)
  1. IMPLANON [Suspect]
     Indication: PRODUCT USED FOR UNKNOWN INDICATION
     Dates: start: 20090121

REACTIONS (4)
  - DEPRESSION [None]
  - MOOD SWINGS [None]
  - SOMATOFORM DISORDER PREGNANCY [None]
  - SUICIDE ATTEMPT [None]
